FAERS Safety Report 4861224-2 (Version None)
Quarter: 2005Q4

REPORT INFORMATION
  Report Type: 
  Country: None (occurrence: None)
  Receive Date: 20051216
  Receipt Date: 20051205
  Transmission Date: 20060501
  Serious: Yes (Hospitalization)
  Sender: FDA-Public Use
  Company Number: 105151

PATIENT
  Age: 57 Year
  Sex: Female

DRUGS (10)
  1. HERCEPTIN [Suspect]
     Indication: BREAST CANCER
     Dosage: 147 MG, 1/WEEK, INTRAVENOUS
     Route: 042
     Dates: start: 20020717
  2. DOCETAXEL(DOCETAXEL) [Suspect]
     Indication: BREAST CANCER
     Dosage: 130 MG, Q3W, INTRAVENOUS
     Route: 042
     Dates: start: 20020717
  3. CARBOPLATIN [Suspect]
     Indication: BREAST CANCER
     Dosage: 640 MG, Q3W, INTRAVENOUS
     Route: 042
     Dates: start: 20020717, end: 20020629
  4. DEXAMETHASONE [Concomitant]
  5. ZOFRAN (ONDANESETRON HYDROCHLORIDE) [Concomitant]
  6. DIFLUCAN (FLUCONAZOL) (FLUCONAZOLE) [Concomitant]
  7. MYCOSTATIN [Concomitant]
  8. VALTREX [Concomitant]
  9. MAXOLON [Concomitant]
  10. CORSODYL (CHLORHEXIDINE GLUCONATE) [Concomitant]

REACTIONS (4)
  - COUGH [None]
  - NEUTROPENIA [None]
  - PHARYNGOLARYNGEAL PAIN [None]
  - PYREXIA [None]
